FAERS Safety Report 10498996 (Version 2)
Quarter: 2014Q4

REPORT INFORMATION
  Report Type: Report from Study
  Country: MX (occurrence: MX)
  Receive Date: 20141006
  Receipt Date: 20141006
  Transmission Date: 20150528
  Serious: Yes (Death, Other)
  Sender: FDA-Public Use
  Company Number: PHHY2014MX070014

PATIENT
  Age: 61 Year
  Sex: Male

DRUGS (2)
  1. ONBREZ BREEZHALER [Suspect]
     Active Substance: INDACATEROL
     Indication: PRODUCT USED FOR UNKNOWN INDICATION
     Dosage: UNK
     Route: 065
     Dates: start: 2014
  2. FORADIL [Suspect]
     Active Substance: FORMOTEROL FUMARATE
     Indication: ASTHMA
     Dosage: 1 DF, DAILY
     Route: 065

REACTIONS (3)
  - Bronchospasm [Fatal]
  - Respiratory arrest [Unknown]
  - Asthma [Fatal]

NARRATIVE: CASE EVENT DATE: 20140312
